FAERS Safety Report 12228373 (Version 3)
Quarter: 2016Q2

REPORT INFORMATION
  Report Type: Spontaneous
  Country: JP (occurrence: JP)
  Receive Date: 20160401
  Receipt Date: 20160422
  Transmission Date: 20160815
  Serious: Yes (Hospitalization)
  Sender: FDA-Public Use
  Company Number: JP-ROCHE-1735635

PATIENT
  Age: 43 Year
  Sex: Female
  Weight: 73 kg

DRUGS (8)
  1. REBAMIPIDE [Concomitant]
     Active Substance: REBAMIPIDE
     Dosage: DOSAGE IS UNCERTAIN.
     Route: 065
  2. JUVELA N [Concomitant]
     Active Substance: TOCOPHERYL NICOTINATE, D-.ALPHA.
     Dosage: DOSAGE IS UNCERTAIN.
     Route: 048
  3. LYRICA [Concomitant]
     Active Substance: PREGABALIN
     Dosage: DOSAGE IS UNCERTAIN.
     Route: 048
  4. LOXOPROFEN [Suspect]
     Active Substance: LOXOPROFEN
     Indication: WOUND COMPLICATION
     Route: 048
     Dates: start: 20151224, end: 20160322
  5. PURSENNID [Concomitant]
     Active Substance: SENNOSIDES A AND B
     Dosage: DOSAGE IS UNCERTAIN.
     Route: 065
  6. KADCYLA [Suspect]
     Active Substance: ADO-TRASTUZUMAB EMTANSINE
     Indication: BREAST CANCER
     Route: 041
     Dates: start: 20150707, end: 20160301
  7. NOLVADEX [Concomitant]
     Active Substance: TAMOXIFEN CITRATE
     Indication: BREAST CANCER
     Dosage: DOSAGE IS UNCERTAIN.
     Route: 048
  8. U-PASTA [Concomitant]
     Dosage: DOSAGE IS UNCERTAIN.
     Route: 065

REACTIONS (3)
  - Platelet count decreased [Unknown]
  - Ulcer haemorrhage [Recovering/Resolving]
  - Gastroduodenal ulcer [Recovering/Resolving]

NARRATIVE: CASE EVENT DATE: 20160322
